FAERS Safety Report 8935576 (Version 1)
Quarter: 2012Q4

REPORT INFORMATION
  Report Type: 
  Country: NL (occurrence: NL)
  Receive Date: 20121130
  Receipt Date: 20121130
  Transmission Date: 20130627
  Serious: Yes (Death)
  Sender: FDA-Public Use
  Company Number: PHHY2012NL109647

PATIENT
  Sex: Male

DRUGS (4)
  1. ZOMETA [Suspect]
     Dosage: 4 mg, per 100 ml 1 x 28 days
     Dates: start: 20120504
  2. ZOMETA [Suspect]
     Dosage: 4 mg, per 100 ml 1 x 28 days
     Dates: start: 20120917
  3. ZOMETA [Suspect]
     Dosage: 4 mg, per 100 ml 1 x 28 days
     Dates: start: 20121115
  4. ZOMETA [Suspect]
     Indication: METASTASES TO BONE
     Dosage: 4 mg, per 100 ml 1 x 28 days

REACTIONS (1)
  - Death [Fatal]
